FAERS Safety Report 9625654 (Version 1)
Quarter: 2013Q4

REPORT INFORMATION
  Report Type: Report from Study
  Country: IE (occurrence: IE)
  Receive Date: 20131016
  Receipt Date: 20131016
  Transmission Date: 20140711
  Serious: Yes (Other)
  Sender: FDA-Public Use
  Company Number: IE-ALEXION PHARMACEUTICALS INC.-A201302592

PATIENT
  Age: 53 Year
  Sex: Female

DRUGS (2)
  1. SOLIRIS [Suspect]
     Indication: PAROXYSMAL NOCTURNAL HAEMOGLOBINURIA
     Dosage: 900 MG, Q2W
     Route: 042
     Dates: start: 20101229
  2. WARFARIN [Concomitant]
     Dosage: 5 MG, QD

REACTIONS (3)
  - Lower respiratory tract infection [Unknown]
  - Respiratory rate increased [Unknown]
  - Haemolysis [Unknown]
